FAERS Safety Report 7399467-9 (Version None)
Quarter: 2011Q2

REPORT INFORMATION
  Report Type: 
  Country: None (occurrence: None)
  Receive Date: 20110407
  Receipt Date: 20110404
  Transmission Date: 20111010
  Serious: Yes (Death)
  Sender: FDA-Public Use
  Company Number: PHHY2011CA15274

PATIENT
  Sex: Male

DRUGS (4)
  1. PRAMIPEXOLE DIHYDROCHLORIDE [Concomitant]
  2. SINEMET [Concomitant]
  3. AMANTADINE HCL [Concomitant]
  4. CLOZARIL [Suspect]
     Indication: PARKINSON'S DISEASE
     Dosage: 50 MG, UNK
     Route: 048
     Dates: start: 20080605

REACTIONS (1)
  - CARDIAC ARREST [None]
